FAERS Safety Report 19566472 (Version 2)
Quarter: 2021Q3

REPORT INFORMATION
  Report Type: Spontaneous
  Country: US (occurrence: US)
  Receive Date: 20210716
  Receipt Date: 20210728
  Transmission Date: 20211014
  Serious: Yes (Other)
  Sender: FDA-Public Use
  Company Number: US-R-PHARM US LLC-2021RPM00003

PATIENT
  Age: 58 Year
  Sex: Female
  Weight: 113.38 kg

DRUGS (9)
  1. ALLOPURINOL. [Concomitant]
     Active Substance: ALLOPURINOL
  2. LISINOPRIL. [Concomitant]
     Active Substance: LISINOPRIL
  3. LEXAPRO [Concomitant]
     Active Substance: ESCITALOPRAM OXALATE
  4. IXEMPRA [Suspect]
     Active Substance: IXABEPILONE
     Dosage: 1 UNK, 1X/WEEK
     Route: 042
     Dates: start: 20210628
  5. SYNTHROID [Concomitant]
     Active Substance: LEVOTHYROXINE SODIUM
  6. MVASI [Concomitant]
     Active Substance: BEVACIZUMAB-AWWB
  7. ELIQUIS [Concomitant]
     Active Substance: APIXABAN
  8. JANUMET [Concomitant]
     Active Substance: METFORMIN HYDROCHLORIDE\SITAGLIPTIN PHOSPHATE
  9. IXEMPRA [Suspect]
     Active Substance: IXABEPILONE
     Indication: BREAST CANCER
     Dosage: 1 UNK, 1X/WEEK
     Route: 042
     Dates: end: 202105

REACTIONS (7)
  - Abdominal pain [Unknown]
  - Pain [Unknown]
  - Fatigue [Recovering/Resolving]
  - Hypersomnia [Recovered/Resolved]
  - Malaise [Recovering/Resolving]
  - Breast cancer recurrent [Unknown]
  - Feeling abnormal [Unknown]

NARRATIVE: CASE EVENT DATE: 2021
